FAERS Safety Report 6429596-5 (Version None)
Quarter: 2009Q4

REPORT INFORMATION
  Report Type: 
  Country: None (occurrence: None)
  Receive Date: 20091103
  Receipt Date: 20091021
  Transmission Date: 20100525
  Serious: Yes (Hospitalization, Other)
  Sender: FDA-Public Use
  Company Number: 2009AP003985

PATIENT
  Age: 13 Year
  Sex: Female

DRUGS (3)
  1. LISINOPRIL [Suspect]
  2. NICORANDIL [Suspect]
  3. METOCLOPRAMIDE [Suspect]

REACTIONS (13)
  - BACK PAIN [None]
  - COLD SWEAT [None]
  - DIZZINESS [None]
  - ECHOCARDIOGRAM ABNORMAL [None]
  - HYPOPERFUSION [None]
  - HYPOTENSION [None]
  - HYPOXIA [None]
  - MULTIPLE DRUG OVERDOSE INTENTIONAL [None]
  - MYOCARDIAL ISCHAEMIA [None]
  - NAUSEA [None]
  - RADIAL PULSE ABNORMAL [None]
  - SUICIDE ATTEMPT [None]
  - TACHYCARDIA [None]
